FAERS Safety Report 7948981-3 (Version None)
Quarter: 2011Q4

REPORT INFORMATION
  Report Type: 
  Country: None (occurrence: None)
  Receive Date: 20111130
  Receipt Date: 20111126
  Transmission Date: 20120403
  Serious: Yes (Other)
  Sender: FDA-Public Use
  Company Number: US-PFIZER INC-2011288582

PATIENT
  Sex: Male
  Weight: 191 kg

DRUGS (7)
  1. MARIJUANA [Concomitant]
     Dosage: UNK, DAILY
  2. VIAGRA [Suspect]
     Indication: PENIS DISORDER
     Dosage: 2000 MG, EVERY 6 HOURS
     Route: 048
     Dates: start: 20110101
  3. METHAMPHETAMINE [Concomitant]
     Dosage: UNK
  4. COCAINE [Suspect]
     Dosage: UNK, DAILY
  5. OXYCONTIN [Suspect]
     Dosage: 2000 MG, EVERY 6 HOURS
     Route: 048
  6. CODEINE [Suspect]
     Dosage: 2000 MG, EVERY 6 HOURS
     Route: 048
  7. VICODIN [Suspect]
     Dosage: 2000 MG, EVERY 6 HOURS
     Route: 048

REACTIONS (8)
  - BLOOD URINE PRESENT [None]
  - ERECTION INCREASED [None]
  - MYOCARDIAL INFARCTION [None]
  - PENILE SWELLING [None]
  - CARDIAC DISORDER [None]
  - INCORRECT DOSE ADMINISTERED [None]
  - PENILE PAIN [None]
  - CONVULSION [None]
